FAERS Safety Report 9045413 (Version 1)
Quarter: 2013Q1

REPORT INFORMATION
  Report Type: Report from Study
  Country: US (occurrence: US)
  Receive Date: 20130131
  Receipt Date: 20130131
  Transmission Date: 20140127
  Serious: No
  Sender: FDA-Public Use
  Company Number: US-ABBOTT-12P-163-1004802-00

PATIENT
  Age: 40 Year
  Sex: Female

DRUGS (15)
  1. HUMIRA [Suspect]
     Indication: ANKYLOSING SPONDYLITIS
     Dates: start: 2007
  2. HUMIRA [Suspect]
     Dates: start: 201211
  3. PLAQUENIL [Concomitant]
     Indication: SYSTEMIC LUPUS ERYTHEMATOSUS
  4. CELEBREX [Concomitant]
     Indication: ANKYLOSING SPONDYLITIS
  5. MORPHINE [Concomitant]
     Indication: ANKYLOSING SPONDYLITIS
  6. ZANAFLEX [Concomitant]
     Indication: ANKYLOSING SPONDYLITIS
     Dosage: 2-3 TIMES/DAY
  7. DIAZEPAM [Concomitant]
     Indication: ANKYLOSING SPONDYLITIS
  8. DIAZEPAM [Concomitant]
     Indication: ANXIETY
  9. AMBIEN [Concomitant]
     Indication: INSOMNIA
     Dosage: 10MG EVERY NIGHT
  10. PROPRANOLOL [Concomitant]
     Indication: HYPERTENSION
  11. ZOFRAN [Concomitant]
     Indication: NAUSEA
  12. LONOX [Concomitant]
     Indication: GASTRIC DISORDER
  13. BENTYL [Concomitant]
     Indication: GASTRIC DISORDER
  14. HYDROXYZINE [Concomitant]
     Indication: RASH
  15. OLUX E [Concomitant]
     Indication: RASH
     Dosage: CREAM

REACTIONS (1)
  - Ear infection [Recovered/Resolved]
